FAERS Safety Report 6137889-4 (Version None)
Quarter: 2009Q1

REPORT INFORMATION
  Report Type: 
  Country: None (occurrence: None)
  Receive Date: 20090331
  Receipt Date: 20090325
  Transmission Date: 20090719
  Serious: Yes (Other)
  Sender: FDA-Public Use
  Company Number: PHHY2009JP11235

PATIENT
  Sex: Female
  Weight: 54 kg

DRUGS (2)
  1. ZOMETA [Suspect]
     Indication: METASTASES TO BONE
     Dosage: UNK
     Dates: start: 20060601
  2. ZOMETA [Suspect]
     Indication: BREAST CANCER

REACTIONS (2)
  - HYPOAESTHESIA ORAL [None]
  - OSTEOMYELITIS [None]
